FAERS Safety Report 4306581-0 (Version None)
Quarter: 2004Q1

REPORT INFORMATION
  Report Type: 
  Country: None (occurrence: None)
  Receive Date: 20040225
  Receipt Date: 20030909
  Transmission Date: 20041129
  Serious: No
  Sender: FDA-Public Use
  Company Number: US-BRISTOL-MYERS SQUIBB COMPANY-12394003

PATIENT
  Sex: Male

DRUGS (1)
  1. EXCEDRIN (MIGRAINE) [Suspect]
     Indication: TENSION HEADACHE
     Route: 048
     Dates: start: 20030908, end: 20030908

REACTIONS (3)
  - CHILLS [None]
  - FEELING ABNORMAL [None]
  - MEDICATION ERROR [None]
